FAERS Safety Report 8241154-9 (Version None)
Quarter: 2012Q1

REPORT INFORMATION
  Report Type: 
  Country: None (occurrence: None)
  Receive Date: 20120328
  Receipt Date: 20120319
  Transmission Date: 20120608
  Serious: Yes (Other)
  Sender: FDA-Public Use
  Company Number: US-NAPPMUNDI-USA-2012-0082346

PATIENT
  Sex: Female

DRUGS (1)
  1. OXYCONTIN [Suspect]
     Indication: PRODUCT USED FOR UNKNOWN INDICATION
     Dosage: 40 MG, BID

REACTIONS (4)
  - DYSPNOEA [None]
  - LUNG NEOPLASM MALIGNANT [None]
  - STRESS [None]
  - CHRONIC OBSTRUCTIVE PULMONARY DISEASE [None]
